FAERS Safety Report 11061225 (Version 1)
Quarter: 2015Q2

REPORT INFORMATION
  Report Type: Spontaneous
  Country: US (occurrence: None)
  Receive Date: 20150423
  Receipt Date: 20150423
  Transmission Date: 20150821
  Serious: No
  Sender: FDA-Public Use
  Company Number: None

PATIENT
  Age: 8 Year
  Sex: Male
  Weight: 27.22 kg

DRUGS (1)
  1. CETIRIZINE HYDROCHLORIDE. [Suspect]
     Active Substance: CETIRIZINE HYDROCHLORIDE
     Indication: FOOD ALLERGY
     Dosage: 1 DOSES
     Dates: start: 201503

REACTIONS (1)
  - Anaphylactic shock [None]

NARRATIVE: CASE EVENT DATE: 20150325
